FAERS Safety Report 5499481-4 (Version None)
Quarter: 2007Q4

REPORT INFORMATION
  Report Type: 
  Country: None (occurrence: None)
  Receive Date: 20071026
  Receipt Date: 20071017
  Transmission Date: 20080405
  Serious: Yes (Hospitalization)
  Sender: FDA-Public Use
  Company Number: US-ROCHE-525711

PATIENT
  Age: 76 Year
  Sex: Female

DRUGS (5)
  1. BONIVA [Suspect]
     Indication: OSTEOPOROSIS
     Route: 065
     Dates: start: 20061201
  2. OXYCODONE HCL [Suspect]
     Indication: DRUG USE FOR UNKNOWN INDICATION
     Route: 065
  3. SINEQUAN [Concomitant]
  4. LYRICA [Concomitant]
  5. ULTRAM [Concomitant]

REACTIONS (2)
  - BREAST ENLARGEMENT [None]
  - LOSS OF CONSCIOUSNESS [None]
